FAERS Safety Report 4401604-2 (Version None)
Quarter: 2004Q3

REPORT INFORMATION
  Report Type: 
  Country: None (occurrence: None)
  Receive Date: 20040719
  Receipt Date: 20040609
  Transmission Date: 20050211
  Serious: Yes (Hospitalization)
  Sender: FDA-Public Use
  Company Number: US-BRISTOL-MYERS SQUIBB COMPANY-12609988

PATIENT
  Age: 84 Year
  Sex: Female
  Weight: 79 kg

DRUGS (11)
  1. ABILIFY [Suspect]
     Indication: BIPOLAR DISORDER
     Dosage: 5 MG/DAY 12-MAR-04 AND INC. TO 10 MG/DAY ON 23-MAR-04;STOPPED, THEN RESTARTED @ 5 MG/DAY
     Route: 048
     Dates: start: 20040312
  2. LAMOTRIGINE [Suspect]
     Dates: start: 20040312
  3. SEROQUEL [Concomitant]
  4. REMINYL [Concomitant]
  5. EFFEXOR XR [Concomitant]
  6. NOLVADEX [Concomitant]
  7. AMBIEN [Concomitant]
  8. MELATONIN [Concomitant]
     Dates: start: 20040312
  9. XANAX [Concomitant]
  10. SENOKOT [Concomitant]
  11. REMERON [Concomitant]

REACTIONS (2)
  - PANCREATIC PSEUDOCYST [None]
  - PANCREATITIS [None]
